FAERS Safety Report 7380930-1 (Version None)
Quarter: 2011Q1

REPORT INFORMATION
  Report Type: 
  Country: None (occurrence: None)
  Receive Date: 20110329
  Receipt Date: 20100706
  Transmission Date: 20110831
  Serious: Yes (Other)
  Sender: FDA-Public Use
  Company Number: US-BAYER-201022432NA

PATIENT
  Sex: Female
  Weight: 82 kg

DRUGS (5)
  1. YAZ [Suspect]
     Indication: ORAL CONTRACEPTION
     Route: 048
     Dates: start: 20071101, end: 20080615
  2. WELLBUTRIN [Concomitant]
     Dosage: 150 MG, BID
     Route: 048
  3. VICODIN [Concomitant]
  4. ALBUTEROL [Concomitant]
  5. MOTRIN [Concomitant]
     Dates: start: 20000101, end: 20100615

REACTIONS (3)
  - ABDOMINAL PAIN UPPER [None]
  - CHOLELITHIASIS [None]
  - CHOLECYSTITIS CHRONIC [None]
